FAERS Safety Report 13971894 (Version 1)
Quarter: 2017Q3

REPORT INFORMATION
  Report Type: Other
  Country: CY (occurrence: CY)
  Receive Date: 20170914
  Receipt Date: 20170914
  Transmission Date: 20171128
  Serious: Yes (Life-Threatening, Hospitalization, Other)
  Sender: FDA-Public Use
  Company Number: CY-APOPHARMA USA, INC.-2017AP018150

PATIENT
  Age: 41 Year
  Sex: Female

DRUGS (1)
  1. FERRIPROX [Suspect]
     Active Substance: DEFERIPRONE
     Indication: THALASSAEMIA BETA
     Dosage: 7.5 MG/KG, UNKNOWN
     Route: 048
     Dates: start: 20030727, end: 20030830

REACTIONS (1)
  - Neutropenia [Recovered/Resolved]

NARRATIVE: CASE EVENT DATE: 20030727
